FAERS Safety Report 21640788 (Version 1)
Quarter: 2022Q4

REPORT INFORMATION
  Report Type: Spontaneous
  Country: US (occurrence: US)
  Receive Date: 20221125
  Receipt Date: 20221125
  Transmission Date: 20230112
  Serious: No
  Sender: FDA-Public Use
  Company Number: US-drreddys-SPO/USA/22/0156948

PATIENT
  Sex: Female

DRUGS (3)
  1. NICOTINE [Suspect]
     Active Substance: NICOTINE
     Indication: Tobacco user
     Dosage: STEP 1
     Route: 062
  2. NICOTINE [Suspect]
     Active Substance: NICOTINE
     Dosage: STEP 2
     Route: 062
  3. NICOTINE [Suspect]
     Active Substance: NICOTINE
     Dosage: STEP 3
     Route: 062

REACTIONS (1)
  - Nicotine dependence [Unknown]
